FAERS Safety Report 9265191 (Version 3)
Quarter: 2014Q2

REPORT INFORMATION
  Report Type: Spontaneous
  Country: IT (occurrence: IT)
  Receive Date: 20130501
  Receipt Date: 20140411
  Transmission Date: 20141212
  Serious: Yes (Hospitalization)
  Sender: FDA-Public Use
  Company Number: IT-ALLERGAN-1305989US

PATIENT
  Age: 83 Year
  Sex: Female

DRUGS (1)
  1. COMBIGAN [Suspect]
     Indication: ANGLE CLOSURE GLAUCOMA
     Dosage: 2 GTT, QD
     Route: 047
     Dates: start: 20130401, end: 20130405

REACTIONS (6)
  - Syncope [Recovered/Resolved]
  - Traumatic fracture [Recovered/Resolved]
  - Incontinence [Recovered/Resolved]
  - Carotid arteriosclerosis [Recovered/Resolved]
  - Loss of consciousness [Recovered/Resolved]
  - Sinus bradycardia [Recovered/Resolved]
